FAERS Safety Report 20600423 (Version 5)
Quarter: 2022Q3

REPORT INFORMATION
  Report Type: Report from Study
  Country: US (occurrence: US)
  Receive Date: 20220316
  Receipt Date: 20220909
  Transmission Date: 20221027
  Serious: Yes (Other)
  Sender: FDA-Public Use
  Company Number: US-NOVARTISTESTPH-NVSC2022US059734

PATIENT
  Age: 59 Year
  Sex: Female

DRUGS (1)
  1. ENTRESTO [Suspect]
     Active Substance: SACUBITRIL\VALSARTAN
     Indication: Cardiac failure chronic
     Dosage: UNK
     Route: 065

REACTIONS (9)
  - Renal impairment [Unknown]
  - Weight decreased [Unknown]
  - Stress [Unknown]
  - Panic attack [Unknown]
  - Confusional state [Unknown]
  - Hepatic function abnormal [Unknown]
  - Tearfulness [Unknown]
  - Hypotension [Unknown]
  - Product dose omission issue [Unknown]
